FAERS Safety Report 7510096-6 (Version None)
Quarter: 2011Q2

REPORT INFORMATION
  Report Type: 
  Country: None (occurrence: None)
  Receive Date: 20110527
  Receipt Date: 20110516
  Transmission Date: 20111010
  Serious: Yes (Hospitalization)
  Sender: FDA-Public Use
  Company Number: DE-MYLANLABS-2011S1008098

PATIENT
  Age: 74 Year
  Sex: Female
  Weight: 73 kg

DRUGS (12)
  1. OMEPRAZOLE [Interacting]
     Indication: PROPHYLAXIS AGAINST GASTROINTESTINAL ULCER
     Route: 048
     Dates: end: 20100203
  2. DIPIDOLOR [Concomitant]
     Indication: PAIN
     Route: 058
     Dates: start: 20100120, end: 20100120
  3. ARCOXIA [Concomitant]
     Indication: PAIN
     Route: 048
     Dates: start: 20100120, end: 20100123
  4. DORMO-PUREN [Concomitant]
     Indication: INSOMNIA
     Dosage: DOSE IS UNKNOWN
     Route: 048
     Dates: start: 20100121, end: 20100121
  5. DIMENHYDRINATE [Concomitant]
     Indication: PROCEDURAL NAUSEA
     Dosage: 1 AMPULE/DAY; DOSE UNKNOWN
     Route: 042
     Dates: start: 20100120, end: 20100120
  6. BERLOSIN [Concomitant]
     Indication: PAIN
     Route: 042
     Dates: start: 20100120, end: 20100120
  7. PRADAXA [Suspect]
     Indication: THROMBOSIS PROPHYLAXIS
     Dosage: DOSIS: 20.01.10 1X110MG, 21.-22.01.10 1X220MG
     Route: 048
     Dates: start: 20100120, end: 20100120
  8. PANTOPRAZOLE [Interacting]
     Indication: PROPHYLAXIS AGAINST GASTROINTESTINAL ULCER
     Route: 042
     Dates: start: 20100120, end: 20100120
  9. PRADAXA [Suspect]
     Route: 048
     Dates: start: 20100121, end: 20100122
  10. PANTOPRAZOLE [Concomitant]
     Indication: PROPHYLAXIS AGAINST GASTROINTESTINAL ULCER
     Route: 048
     Dates: start: 20100123, end: 20100125
  11. ZOFRAN [Concomitant]
     Indication: PROCEDURAL NAUSEA
     Dosage: 2 AMPULLES/APPLICATION;  DOSE UNKNOWN
     Route: 042
     Dates: start: 20100120, end: 20100120
  12. TRAMADOL HYDROCHLORIDE [Concomitant]
     Indication: PAIN
     Dosage: DOSE IS UNKNOWN
     Route: 048
     Dates: start: 20100121, end: 20100121

REACTIONS (2)
  - DRUG INTERACTION [None]
  - PULMONARY EMBOLISM [None]
